FAERS Safety Report 12988365 (Version 1)
Quarter: 2016Q4

REPORT INFORMATION
  Report Type: Report from Study
  Country: TR (occurrence: TR)
  Receive Date: 20161130
  Receipt Date: 20161130
  Transmission Date: 20170207
  Serious: Yes (Death, Hospitalization)
  Sender: FDA-Public Use
  Company Number: TR-INGENUS PHARMACEUTICALS NJ, LLC-ING201611-000141

PATIENT
  Age: 5 Year
  Sex: Male

DRUGS (1)
  1. PROBENECID AND COLCHICINE [Suspect]
     Active Substance: COLCHICINE\PROBENECID
     Indication: FAMILIAL MEDITERRANEAN FEVER

REACTIONS (8)
  - Overdose [Fatal]
  - Multiple organ dysfunction syndrome [Unknown]
  - Diarrhoea [Unknown]
  - Product use issue [Unknown]
  - Death [Fatal]
  - Toxicity to various agents [Fatal]
  - Nausea [Unknown]
  - Pyrexia [Unknown]
